FAERS Safety Report 16552602 (Version 3)
Quarter: 2019Q3

REPORT INFORMATION
  Report Type: Spontaneous
  Country: US (occurrence: US)
  Receive Date: 20190710
  Receipt Date: 20190923
  Transmission Date: 20191004
  Serious: No
  Sender: FDA-Public Use
  Company Number: US-PFIZER INC-2019068196

PATIENT
  Age: 76 Year
  Sex: Female
  Weight: 75.3 kg

DRUGS (9)
  1. LYRICA [Suspect]
     Active Substance: PREGABALIN
     Indication: SCIATICA
     Dosage: 375 MG, DAILY (1 PO (PER ORAL) IN AM AND AFTERNOON AND 3 PO HS (BED TIME).)
     Route: 048
     Dates: start: 2019
  2. LYRICA [Suspect]
     Active Substance: PREGABALIN
     Indication: PAIN
  3. LYRICA [Suspect]
     Active Substance: PREGABALIN
     Indication: LUMBAR RADICULOPATHY
     Dosage: 75 MG, 3X/DAY
     Route: 048
     Dates: start: 20190206
  4. LYRICA [Suspect]
     Active Substance: PREGABALIN
     Indication: BACK PAIN
     Dosage: 75 MG, 4X/DAY
     Route: 048
     Dates: start: 2019
  5. LYRICA [Suspect]
     Active Substance: PREGABALIN
     Indication: NECK PAIN
  6. LYRICA [Suspect]
     Active Substance: PREGABALIN
     Indication: HYPOAESTHESIA
  7. LYRICA [Suspect]
     Active Substance: PREGABALIN
     Indication: PARAESTHESIA
  8. LYRICA [Suspect]
     Active Substance: PREGABALIN
     Indication: CERVICAL RADICULOPATHY
     Dosage: UNK
     Route: 048
     Dates: start: 201810
  9. LYRICA [Suspect]
     Active Substance: PREGABALIN
     Indication: CERVICAL SPINAL STENOSIS

REACTIONS (2)
  - Hypoacusis [Unknown]
  - Therapeutic product effect incomplete [Unknown]
